FAERS Safety Report 12668450 (Version 1)
Quarter: 2016Q3

REPORT INFORMATION
  Report Type: Spontaneous
  Country: US (occurrence: US)
  Receive Date: 20160819
  Receipt Date: 20160819
  Transmission Date: 20161109
  Serious: No
  Sender: FDA-Public Use
  Company Number: US-PERNIX THERAPEUTICS-2016PT000117

PATIENT

DRUGS (8)
  1. OMEPRAZOLE. [Concomitant]
     Active Substance: OMEPRAZOLE
     Indication: GASTROOESOPHAGEAL REFLUX DISEASE
     Dosage: 20 MG, 2 TABLETS, DAILY
     Route: 048
     Dates: start: 2014
  2. VITAMIN D                          /00107901/ [Concomitant]
     Active Substance: ERGOCALCIFEROL
     Indication: VITAMIN D
     Dosage: 50000 IU, WEEKLY
     Route: 048
     Dates: start: 201604
  3. ATORVASTATIN CALCIUM. [Concomitant]
     Active Substance: ATORVASTATIN CALCIUM
     Dosage: 40 MG TABLES, 1/2 TABLET, DAILY
     Route: 048
  4. GABAPENTIN. [Suspect]
     Active Substance: GABAPENTIN
     Indication: PAIN
     Dosage: 300 MG; DOSAGE IS 3 CAPSULES THREE TIMES DAILY
     Route: 048
     Dates: start: 201511, end: 201603
  5. HYDROCODONE BITARTRATE. [Suspect]
     Active Substance: HYDROCODONE BITARTRATE
     Indication: PAIN
     Dosage: UNK
     Dates: end: 2015
  6. METOLAZONE. [Concomitant]
     Active Substance: METOLAZONE
     Indication: FLUID RETENTION
     Dosage: 5 MG, EVERY OTHER DAY M, W, F, EXCEPT WEEKENDS
     Route: 048
     Dates: start: 201603
  7. FINASTERIDE. [Concomitant]
     Active Substance: FINASTERIDE
     Indication: PROPHYLAXIS
     Dosage: 1 DF, DAILY
     Route: 048
     Dates: start: 2015
  8. GLIPIZIDE. [Concomitant]
     Active Substance: GLIPIZIDE
     Indication: BLOOD GLUCOSE ABNORMAL
     Dosage: 10 MG, TWICE DAILY
     Route: 048

REACTIONS (7)
  - Fatigue [Not Recovered/Not Resolved]
  - Insomnia [Not Recovered/Not Resolved]
  - Grip strength decreased [Not Recovered/Not Resolved]
  - Dyskinesia [Recovered/Resolved]
  - Irritability [Not Recovered/Not Resolved]
  - Sticky skin [Unknown]
  - Drug level fluctuating [Unknown]

NARRATIVE: CASE EVENT DATE: 201511
